FAERS Safety Report 6222559-4 (Version None)
Quarter: 2009Q2

REPORT INFORMATION
  Report Type: 
  Country: None (occurrence: None)
  Receive Date: 20090609
  Receipt Date: 20090609
  Transmission Date: 20091009
  Serious: Yes (Other)
  Sender: FDA-Public Use
  Company Number: None

PATIENT
  Age: 33 Year
  Sex: Female
  Weight: 85.7298 kg

DRUGS (3)
  1. ULTRAM ER [Suspect]
     Indication: BACK PAIN
     Dosage: 1 TABLET ONCE A DAY PO
     Route: 048
     Dates: start: 20090510, end: 20090516
  2. ULTRAM ER [Suspect]
     Indication: MUSCULOSKELETAL PAIN
     Dosage: 1 TABLET ONCE A DAY PO
     Route: 048
     Dates: start: 20090510, end: 20090516
  3. ULTRAM ER [Suspect]
     Indication: PAIN IN EXTREMITY
     Dosage: 1 TABLET ONCE A DAY PO
     Route: 048
     Dates: start: 20090510, end: 20090516

REACTIONS (5)
  - ANOREXIA [None]
  - BREAKTHROUGH PAIN [None]
  - INFLUENZA LIKE ILLNESS [None]
  - PAIN IN EXTREMITY [None]
  - PYREXIA [None]
